FAERS Safety Report 24558013 (Version 1)
Quarter: 2024Q4

REPORT INFORMATION
  Report Type: Report from Study
  Country: US (occurrence: US)
  Receive Date: 20241028
  Receipt Date: 20241028
  Transmission Date: 20250115
  Serious: Yes (Death)
  Sender: Unknown Manufacturer
  Company Number: US-OTTER-US-2024AST000312

PATIENT
  Sex: Male

DRUGS (1)
  1. OTREXUP [Suspect]
     Active Substance: METHOTREXATE
     Indication: Rheumatoid arthritis
     Dosage: 15 MG, EVERY WEEK, UNDER THE SKIN, 0.4 ML INJECTION
     Route: 058
     Dates: start: 202409

REACTIONS (1)
  - Death [Fatal]

NARRATIVE: CASE EVENT DATE: 20240101
